FAERS Safety Report 9983438 (Version 2)
Quarter: 2014Q2

REPORT INFORMATION
  Report Type: Spontaneous
  Country: US (occurrence: US)
  Receive Date: 20140307
  Receipt Date: 20140507
  Transmission Date: 20141212
  Serious: Yes (Other)
  Sender: FDA-Public Use
  Company Number: US-BAYER-2014-032381

PATIENT
  Age: 16 Year
  Sex: Female
  Weight: 51.25 kg

DRUGS (4)
  1. MIRENA [Suspect]
     Indication: CONTRACEPTION
     Dosage: 20 ?G/D, CONT
     Route: 015
     Dates: start: 20120731
  2. FERREX [Concomitant]
     Dosage: 1 DF, QD
     Route: 048
  3. FOLIC ACID W/IRON [Concomitant]
     Dosage: 1 DF, QD
     Route: 048
  4. BETADINE [Concomitant]

REACTIONS (14)
  - Endometritis [None]
  - Device dislocation [Not Recovered/Not Resolved]
  - Uterine injury [Not Recovered/Not Resolved]
  - Device issue [None]
  - Device use error [None]
  - Procedural pain [None]
  - Pelvic pain [None]
  - Dyspareunia [None]
  - Adnexa uteri pain [None]
  - Uterine tenderness [None]
  - Uterine cervical pain [None]
  - Vaginitis gardnerella [None]
  - Vaginal discharge [None]
  - Oligomenorrhoea [None]
